FAERS Safety Report 16894619 (Version 2)
Quarter: 2019Q4

REPORT INFORMATION
  Report Type: Spontaneous
  Country: US (occurrence: US)
  Receive Date: 20191008
  Receipt Date: 20191014
  Transmission Date: 20200122
  Serious: No
  Sender: FDA-Public Use
  Company Number: US-PFIZER INC-2019431115

PATIENT
  Age: 77 Year
  Sex: Female
  Weight: 65.77 kg

DRUGS (1)
  1. GABAPENTIN. [Suspect]
     Active Substance: GABAPENTIN
     Dosage: FOUR DIFFERENT TIMES

REACTIONS (2)
  - Malaise [Unknown]
  - Ill-defined disorder [Unknown]
